FAERS Safety Report 17371828 (Version 1)
Quarter: 2020Q1

REPORT INFORMATION
  Report Type: Report from Study
  Country: IT (occurrence: IT)
  Receive Date: 20200205
  Receipt Date: 20200205
  Transmission Date: 20200409
  Serious: Yes (Death, Hospitalization)
  Sender: FDA-Public Use
  Company Number: IT-EXELIXIS-XL18419024819

PATIENT
  Age: 75 Year
  Sex: Female
  Weight: 52 kg

DRUGS (2)
  1. CABOZANTINIB [Suspect]
     Active Substance: CABOZANTINIB
     Indication: RENAL CELL CARCINOMA
     Dosage: 60 MG, QOD
     Route: 048
     Dates: start: 20190723, end: 20190826
  2. CABOZANTINIB [Suspect]
     Active Substance: CABOZANTINIB
     Dosage: 40 MG, OTHER
     Route: 048
     Dates: start: 20190827, end: 20191002

REACTIONS (13)
  - Aspartate aminotransferase increased [Fatal]
  - Alanine aminotransferase increased [Recovered/Resolved]
  - Odynophagia [Unknown]
  - Abdominal pain [Recovering/Resolving]
  - Stomatitis [Unknown]
  - Aspartate aminotransferase increased [Not Recovered/Not Resolved]
  - Asthenia [Not Recovered/Not Resolved]
  - Off label use [Unknown]
  - Aspartate aminotransferase increased [Recovered/Resolved]
  - Disease progression [Fatal]
  - Glossitis [Unknown]
  - Alanine aminotransferase increased [Not Recovered/Not Resolved]
  - Alanine aminotransferase increased [Fatal]

NARRATIVE: CASE EVENT DATE: 20190723
